FAERS Safety Report 24054625 (Version 1)
Quarter: 2024Q3

REPORT INFORMATION
  Report Type: Spontaneous
  Country: US (occurrence: US)
  Receive Date: 20240705
  Receipt Date: 20240705
  Transmission Date: 20241017
  Serious: No
  Sender: ROCHE
  Company Number: US-ROCHE-10000016387

PATIENT
  Age: 70 Year
  Sex: Male

DRUGS (4)
  1. RITUXIMAB [Suspect]
     Active Substance: RITUXIMAB
     Indication: Ocular lymphoma
     Route: 050
  2. ACETAZOLAMIDE [Concomitant]
     Active Substance: ACETAZOLAMIDE
  3. BRIMONIDINE [Concomitant]
     Active Substance: BRIMONIDINE TARTRATE
  4. DORZOLAMIDE AND TIMOLOL [Concomitant]
     Active Substance: DORZOLAMIDE HYDROCHLORIDE\TIMOLOL MALEATE

REACTIONS (1)
  - Vasculitis [Recovered/Resolved]
